FAERS Safety Report 23939039 (Version 1)
Quarter: 2024Q2

REPORT INFORMATION
  Report Type: Spontaneous
  Country: US (occurrence: US)
  Receive Date: 20240604
  Receipt Date: 20240604
  Transmission Date: 20240716
  Serious: No
  Sender: FDA-Public Use
  Company Number: US-002147023-NVSC2024US117248

PATIENT
  Age: 81 Year
  Sex: Female

DRUGS (1)
  1. LEQVIO [Suspect]
     Active Substance: INCLISIRAN SODIUM
     Indication: Low density lipoprotein decreased
     Dosage: 284 MG (284/1.5 MG/ML) (INITIAL DOSE/SECOND DOSE AT 90 DAYS/THEN EVERY 6 MONTHS)
     Route: 058
     Dates: start: 20240509

REACTIONS (2)
  - Blood bilirubin [Unknown]
  - Arthralgia [Unknown]

NARRATIVE: CASE EVENT DATE: 20240509
